FAERS Safety Report 13429164 (Version 1)
Quarter: 2017Q2

REPORT INFORMATION
  Report Type: Spontaneous
  Country: US (occurrence: US)
  Receive Date: 20170411
  Receipt Date: 20170411
  Transmission Date: 20170830
  Serious: Yes (Other)
  Sender: FDA-Public Use
  Company Number: US-SHIRE-US201707838

PATIENT
  Sex: Female
  Weight: 81.18 kg

DRUGS (1)
  1. LIALDA [Suspect]
     Active Substance: MESALAMINE
     Indication: POLYP
     Dosage: 4.8 G, (1.2 GM, 4 TABLETS, DAILY)
     Route: 048
     Dates: start: 2017

REACTIONS (3)
  - Haemorrhage [Recovered/Resolved]
  - Product use in unapproved indication [Not Recovered/Not Resolved]
  - Drug dose omission [Not Recovered/Not Resolved]

NARRATIVE: CASE EVENT DATE: 2017
